FAERS Safety Report 24321178 (Version 3)
Quarter: 2025Q1

REPORT INFORMATION
  Report Type: Spontaneous
  Country: CA (occurrence: CA)
  Receive Date: 20240916
  Receipt Date: 20250206
  Transmission Date: 20250408
  Serious: Yes (Death, Life-Threatening, Hospitalization, Disabling, Congenital Anomaly, Other)
  Sender: SANDOZ
  Company Number: CA-SANDOZ-SDZ2024CA079520

PATIENT
  Age: 43 Year
  Sex: Female
  Weight: 68 kg

DRUGS (159)
  1. ADALIMUMAB [Suspect]
     Active Substance: ADALIMUMAB
     Route: 058
  2. ADALIMUMAB [Suspect]
     Active Substance: ADALIMUMAB
     Route: 065
  3. ADALIMUMAB [Suspect]
     Active Substance: ADALIMUMAB
     Route: 058
  4. ADALIMUMAB [Suspect]
     Active Substance: ADALIMUMAB
     Route: 065
  5. ADALIMUMAB [Suspect]
     Active Substance: ADALIMUMAB
     Route: 065
  6. ADALIMUMAB [Suspect]
     Active Substance: ADALIMUMAB
     Route: 058
  7. ADALIMUMAB [Suspect]
     Active Substance: ADALIMUMAB
     Indication: Rheumatoid arthritis
     Route: 065
  8. PANTOPRAZOLE SODIUM ANHYDROUS [Suspect]
     Active Substance: PANTOPRAZOLE SODIUM ANHYDROUS
     Indication: Product used for unknown indication
     Route: 065
  9. PANTOPRAZOLE SODIUM ANHYDROUS [Suspect]
     Active Substance: PANTOPRAZOLE SODIUM ANHYDROUS
     Route: 065
  10. AIMOVIG [Suspect]
     Active Substance: ERENUMAB-AOOE
     Indication: Migraine
     Route: 065
  11. ALENDRONIC ACID [Suspect]
     Active Substance: ALENDRONIC ACID
     Route: 048
  12. ALENDRONIC ACID [Suspect]
     Active Substance: ALENDRONIC ACID
     Indication: Rheumatoid arthritis
     Route: 005
  13. ALENDRONIC ACID [Suspect]
     Active Substance: ALENDRONIC ACID
     Route: 048
  14. ALENDRONIC ACID [Suspect]
     Active Substance: ALENDRONIC ACID
     Route: 048
  15. ALENDRONIC ACID [Suspect]
     Active Substance: ALENDRONIC ACID
     Route: 065
  16. ALENDRONIC ACID [Suspect]
     Active Substance: ALENDRONIC ACID
     Route: 065
  17. CANDESARTAN [Suspect]
     Active Substance: CANDESARTAN
     Indication: Migraine
     Route: 048
  18. CETIRIZINE [Suspect]
     Active Substance: CETIRIZINE HYDROCHLORIDE
     Indication: Product used for unknown indication
     Dosage: 1 DF, QD
     Route: 065
  19. CETIRIZINE [Suspect]
     Active Substance: CETIRIZINE HYDROCHLORIDE
     Dosage: 3 DF, QD
     Route: 065
  20. COSENTYX [Suspect]
     Active Substance: SECUKINUMAB
     Indication: Psoriatic arthropathy
     Route: 005
  21. COSENTYX [Suspect]
     Active Substance: SECUKINUMAB
     Indication: Rheumatoid arthritis
     Route: 065
  22. COSENTYX [Suspect]
     Active Substance: SECUKINUMAB
     Route: 065
  23. COSENTYX [Suspect]
     Active Substance: SECUKINUMAB
     Route: 065
  24. COSENTYX [Suspect]
     Active Substance: SECUKINUMAB
     Route: 065
  25. DICLOFENAC POTASSIUM [Suspect]
     Active Substance: DICLOFENAC POTASSIUM
     Indication: Product used for unknown indication
     Route: 065
  26. DICLOFENAC SODIUM [Suspect]
     Active Substance: DICLOFENAC SODIUM
     Indication: Product used for unknown indication
     Route: 065
  27. DICLOFENAC SODIUM [Suspect]
     Active Substance: DICLOFENAC SODIUM
     Route: 047
  28. DICLOFENAC SODIUM [Suspect]
     Active Substance: DICLOFENAC SODIUM
     Route: 058
  29. DICLOFENAC SODIUM [Suspect]
     Active Substance: DICLOFENAC SODIUM
     Route: 065
  30. DICLOFENAC SODIUM [Suspect]
     Active Substance: DICLOFENAC SODIUM
     Indication: Product used for unknown indication
     Route: 058
  31. DOMPERIDONE MALEATE [Suspect]
     Active Substance: DOMPERIDONE MALEATE
     Indication: Product used for unknown indication
     Dosage: 1 DF, QD
     Route: 065
  32. DOMPERIDONE MALEATE [Suspect]
     Active Substance: DOMPERIDONE MALEATE
     Route: 065
  33. DOMPERIDONE MALEATE [Suspect]
     Active Substance: DOMPERIDONE MALEATE
     Dosage: 2 DF, QD
     Route: 065
  34. DOMPERIDONE\PANTOPRAZOLE SODIUM [Suspect]
     Active Substance: DOMPERIDONE\PANTOPRAZOLE SODIUM
     Indication: Product used for unknown indication
     Dosage: 1 DF, Q48H
     Route: 065
  35. ERELZI [Suspect]
     Active Substance: ETANERCEPT-SZZS
     Dosage: 5 MG, QW
     Route: 065
  36. ERELZI [Suspect]
     Active Substance: ETANERCEPT-SZZS
     Route: 058
  37. ERELZI [Suspect]
     Active Substance: ETANERCEPT-SZZS
     Indication: Rheumatoid arthritis
     Route: 065
  38. FOLIC ACID [Suspect]
     Active Substance: FOLIC ACID
     Route: 048
  39. FOLIC ACID [Suspect]
     Active Substance: FOLIC ACID
     Route: 065
  40. FOLIC ACID [Suspect]
     Active Substance: FOLIC ACID
     Route: 048
  41. FOLIC ACID [Suspect]
     Active Substance: FOLIC ACID
     Route: 065
  42. FOLIC ACID [Suspect]
     Active Substance: FOLIC ACID
     Route: 048
  43. FOLIC ACID [Suspect]
     Active Substance: FOLIC ACID
     Route: 058
  44. FOLIC ACID [Suspect]
     Active Substance: FOLIC ACID
     Route: 065
  45. FOLIC ACID [Suspect]
     Active Substance: FOLIC ACID
     Route: 065
  46. FOLIC ACID [Suspect]
     Active Substance: FOLIC ACID
     Route: 065
  47. FOLIC ACID [Suspect]
     Active Substance: FOLIC ACID
     Route: 048
  48. FOLIC ACID [Suspect]
     Active Substance: FOLIC ACID
     Route: 065
  49. FOLIC ACID [Suspect]
     Active Substance: FOLIC ACID
     Route: 048
  50. FOLIC ACID [Suspect]
     Active Substance: FOLIC ACID
     Indication: Rheumatoid arthritis
     Route: 065
  51. FOLIC ACID [Suspect]
     Active Substance: FOLIC ACID
     Route: 065
  52. FOLIC ACID [Suspect]
     Active Substance: FOLIC ACID
     Dosage: 5 MG, QD
     Route: 065
  53. FOLIC ACID [Suspect]
     Active Substance: FOLIC ACID
     Route: 048
  54. FOLIC ACID [Suspect]
     Active Substance: FOLIC ACID
     Route: 048
  55. FOLIC ACID [Suspect]
     Active Substance: FOLIC ACID
     Route: 065
  56. FOLIC ACID [Suspect]
     Active Substance: FOLIC ACID
     Route: 065
  57. FOLIC ACID [Suspect]
     Active Substance: FOLIC ACID
     Route: 065
  58. FOLIC ACID [Suspect]
     Active Substance: FOLIC ACID
     Route: 065
  59. FOLIC ACID [Suspect]
     Active Substance: FOLIC ACID
     Route: 048
  60. FOLIC ACID [Suspect]
     Active Substance: FOLIC ACID
     Route: 065
  61. FOLIC ACID [Suspect]
     Active Substance: FOLIC ACID
     Route: 065
  62. FOLIC ACID [Suspect]
     Active Substance: FOLIC ACID
     Route: 065
  63. HYDROCORTISONE [Suspect]
     Active Substance: HYDROCORTISONE
     Route: 065
  64. HYDROCORTISONE [Suspect]
     Active Substance: HYDROCORTISONE
     Indication: Rheumatoid arthritis
     Route: 065
  65. HYDROCORTISONE [Suspect]
     Active Substance: HYDROCORTISONE
     Route: 065
  66. HYDROCORTISONE [Suspect]
     Active Substance: HYDROCORTISONE
     Route: 065
  67. HYDROCORTISONE [Suspect]
     Active Substance: HYDROCORTISONE
     Route: 065
  68. HYDROCORTISONE [Suspect]
     Active Substance: HYDROCORTISONE
     Dosage: 3 MG, QD
     Route: 065
  69. LEFLUNOMIDE [Suspect]
     Active Substance: LEFLUNOMIDE
     Dosage: 10 MG, QD
     Route: 065
  70. LEFLUNOMIDE [Suspect]
     Active Substance: LEFLUNOMIDE
     Dosage: 20 MG, QD
     Route: 065
  71. LEFLUNOMIDE [Suspect]
     Active Substance: LEFLUNOMIDE
     Route: 048
  72. LEFLUNOMIDE [Suspect]
     Active Substance: LEFLUNOMIDE
     Route: 065
  73. LEFLUNOMIDE [Suspect]
     Active Substance: LEFLUNOMIDE
     Indication: Rheumatoid arthritis
     Route: 048
  74. LEFLUNOMIDE [Suspect]
     Active Substance: LEFLUNOMIDE
     Route: 048
  75. LEFLUNOMIDE [Suspect]
     Active Substance: LEFLUNOMIDE
     Route: 065
  76. LAMICTAL [Suspect]
     Active Substance: LAMOTRIGINE
     Dosage: 50 MG, QD
     Route: 048
  77. LAMICTAL [Suspect]
     Active Substance: LAMOTRIGINE
     Indication: Product used for unknown indication
     Route: 065
  78. METHOTREXATE [Suspect]
     Active Substance: METHOTREXATE
     Dosage: 1 G, QD
     Route: 048
  79. METHOTREXATE [Suspect]
     Active Substance: METHOTREXATE
     Route: 048
  80. METHOTREXATE [Suspect]
     Active Substance: METHOTREXATE
     Route: 048
  81. METHOTREXATE [Suspect]
     Active Substance: METHOTREXATE
     Route: 048
  82. METHOTREXATE [Suspect]
     Active Substance: METHOTREXATE
     Route: 048
  83. METHOTREXATE [Suspect]
     Active Substance: METHOTREXATE
     Dosage: 1 DF, QD
     Route: 048
  84. METHOTREXATE [Suspect]
     Active Substance: METHOTREXATE
     Dosage: 1 DF, QD
     Route: 065
  85. METHOTREXATE [Suspect]
     Active Substance: METHOTREXATE
     Dosage: 15 MG, QW
     Route: 065
  86. METHOTREXATE [Suspect]
     Active Substance: METHOTREXATE
     Dosage: 15 MG, QD
     Route: 048
  87. METHOTREXATE [Suspect]
     Active Substance: METHOTREXATE
     Dosage: 15 MG, QD
     Route: 065
  88. METHOTREXATE [Suspect]
     Active Substance: METHOTREXATE
     Dosage: 2 DF, QD
     Route: 065
  89. METHOTREXATE [Suspect]
     Active Substance: METHOTREXATE
     Dosage: 20 MG, QW
     Route: 013
  90. METHOTREXATE [Suspect]
     Active Substance: METHOTREXATE
     Dosage: 20 MG, QW
     Route: 048
  91. METHOTREXATE [Suspect]
     Active Substance: METHOTREXATE
     Dosage: 20 MG, QW
     Route: 048
  92. METHOTREXATE [Suspect]
     Active Substance: METHOTREXATE
     Dosage: 20 MG, QW
     Route: 065
  93. METHOTREXATE [Suspect]
     Active Substance: METHOTREXATE
     Dosage: 20 MG, QW
     Route: 065
  94. METHOTREXATE [Suspect]
     Active Substance: METHOTREXATE
     Dosage: 20 MG, QD
     Route: 048
  95. METHOTREXATE [Suspect]
     Active Substance: METHOTREXATE
     Dosage: 20 MG, QD
     Route: 048
  96. METHOTREXATE [Suspect]
     Active Substance: METHOTREXATE
     Dosage: 20 MG, QD
     Route: 048
  97. METHOTREXATE [Suspect]
     Active Substance: METHOTREXATE
     Dosage: 20 MG, QD
     Route: 065
  98. METHOTREXATE [Suspect]
     Active Substance: METHOTREXATE
     Dosage: 20 MG, QD
     Route: 065
  99. METHOTREXATE [Suspect]
     Active Substance: METHOTREXATE
     Route: 048
  100. METHOTREXATE [Suspect]
     Active Substance: METHOTREXATE
     Route: 048
  101. METHOTREXATE [Suspect]
     Active Substance: METHOTREXATE
     Route: 065
  102. METHOTREXATE [Suspect]
     Active Substance: METHOTREXATE
     Dosage: 25 MG, QW
     Route: 013
  103. METHOTREXATE [Suspect]
     Active Substance: METHOTREXATE
     Dosage: 25 MG, QW
     Route: 013
  104. METHOTREXATE [Suspect]
     Active Substance: METHOTREXATE
     Dosage: 25 MG, QW
     Route: 048
  105. METHOTREXATE [Suspect]
     Active Substance: METHOTREXATE
     Dosage: 25 MG, QW
     Route: 048
  106. METHOTREXATE [Suspect]
     Active Substance: METHOTREXATE
     Dosage: 25 MG, QW
     Route: 058
  107. METHOTREXATE [Suspect]
     Active Substance: METHOTREXATE
     Dosage: 25 MG, QD
     Route: 013
  108. METHOTREXATE [Suspect]
     Active Substance: METHOTREXATE
     Dosage: 25 MG, QD
     Route: 042
  109. METHOTREXATE [Suspect]
     Active Substance: METHOTREXATE
     Indication: Psoriatic arthropathy
     Dosage: 25 MG, QD
     Route: 048
  110. METHOTREXATE [Suspect]
     Active Substance: METHOTREXATE
     Dosage: 25 MG, QD
     Route: 048
  111. METHOTREXATE [Suspect]
     Active Substance: METHOTREXATE
     Route: 013
  112. METHOTREXATE [Suspect]
     Active Substance: METHOTREXATE
     Route: 013
  113. METHOTREXATE [Suspect]
     Active Substance: METHOTREXATE
     Route: 048
  114. METHOTREXATE [Suspect]
     Active Substance: METHOTREXATE
     Route: 048
  115. METHOTREXATE [Suspect]
     Active Substance: METHOTREXATE
     Route: 048
  116. METHOTREXATE [Suspect]
     Active Substance: METHOTREXATE
     Route: 065
  117. METHOTREXATE [Suspect]
     Active Substance: METHOTREXATE
     Route: 065
  118. METHOTREXATE [Suspect]
     Active Substance: METHOTREXATE
     Route: 065
  119. METHOTREXATE [Suspect]
     Active Substance: METHOTREXATE
     Route: 048
  120. METHOTREXATE [Suspect]
     Active Substance: METHOTREXATE
     Route: 048
  121. METHOTREXATE [Suspect]
     Active Substance: METHOTREXATE
     Dosage: UNK, QD
     Route: 048
  122. METHOTREXATE [Suspect]
     Active Substance: METHOTREXATE
     Route: 016
  123. METHOTREXATE [Suspect]
     Active Substance: METHOTREXATE
     Route: 058
  124. METHOTREXATE [Suspect]
     Active Substance: METHOTREXATE
     Indication: Rheumatoid arthritis
     Route: 065
  125. METHOTREXATE [Suspect]
     Active Substance: METHOTREXATE
     Route: 065
  126. METHOTREXATE [Suspect]
     Active Substance: METHOTREXATE
     Route: 065
  127. METHOTREXATE [Suspect]
     Active Substance: METHOTREXATE
     Route: 065
  128. MYCOPHENOLATE MOFETIL [Suspect]
     Active Substance: MYCOPHENOLATE MOFETIL
     Indication: Product used for unknown indication
     Route: 065
  129. NAPROXEN [Suspect]
     Active Substance: NAPROXEN
     Indication: Product used for unknown indication
     Route: 065
  130. NAPROXEN [Suspect]
     Active Substance: NAPROXEN
     Route: 065
  131. NAPROXEN [Suspect]
     Active Substance: NAPROXEN
     Route: 065
  132. OXYCODONE HYDROCHLORIDE [Suspect]
     Active Substance: OXYCODONE HYDROCHLORIDE
     Indication: Product used for unknown indication
     Route: 065
  133. OXYCODONE HYDROCHLORIDE [Suspect]
     Active Substance: OXYCODONE HYDROCHLORIDE
     Route: 065
  134. PANTOPRAZOLE SODIUM [Suspect]
     Active Substance: PANTOPRAZOLE SODIUM
     Dosage: 2 DOSAGE FORM, QD
     Route: 065
  135. PANTOPRAZOLE SODIUM [Suspect]
     Active Substance: PANTOPRAZOLE SODIUM
     Indication: Product used for unknown indication
     Route: 065
  136. PANTOPRAZOLE SODIUM [Suspect]
     Active Substance: PANTOPRAZOLE SODIUM
     Route: 065
  137. PANTOPRAZOLE SODIUM [Suspect]
     Active Substance: PANTOPRAZOLE SODIUM
     Indication: Dyspepsia
     Route: 005
  138. PANTOPRAZOLE SODIUM [Suspect]
     Active Substance: PANTOPRAZOLE SODIUM
     Route: 065
  139. PANTOPRAZOLE SODIUM [Suspect]
     Active Substance: PANTOPRAZOLE SODIUM
     Route: 065
  140. QUETIAPINE FUMARATE [Suspect]
     Active Substance: QUETIAPINE FUMARATE
     Indication: Product used for unknown indication
     Route: 048
  141. QUETIAPINE FUMARATE [Suspect]
     Active Substance: QUETIAPINE FUMARATE
     Route: 065
  142. RITUXIMAB [Suspect]
     Active Substance: RITUXIMAB
     Route: 065
  143. RITUXIMAB [Suspect]
     Active Substance: RITUXIMAB
     Route: 016
  144. RITUXIMAB [Suspect]
     Active Substance: RITUXIMAB
     Route: 016
  145. RITUXIMAB [Suspect]
     Active Substance: RITUXIMAB
     Route: 016
  146. RITUXIMAB [Suspect]
     Active Substance: RITUXIMAB
     Route: 041
  147. RITUXIMAB [Suspect]
     Active Substance: RITUXIMAB
     Indication: Rheumatoid arthritis
     Route: 042
  148. RITUXIMAB [Suspect]
     Active Substance: RITUXIMAB
     Route: 042
  149. RITUXIMAB [Suspect]
     Active Substance: RITUXIMAB
     Route: 043
  150. RITUXIMAB [Suspect]
     Active Substance: RITUXIMAB
     Route: 058
  151. RITUXIMAB [Suspect]
     Active Substance: RITUXIMAB
     Route: 065
  152. TOPICORT [Suspect]
     Active Substance: DESOXIMETASONE
     Route: 065
  153. TOPICORT [Suspect]
     Active Substance: DESOXIMETASONE
     Indication: Product used for unknown indication
     Route: 065
  154. TOPICORT [Suspect]
     Active Substance: DESOXIMETASONE
     Route: 065
  155. TOPICORT [Suspect]
     Active Substance: DESOXIMETASONE
     Dosage: 3 MG, QD
     Route: 065
  156. TOPIRAMATE [Suspect]
     Active Substance: TOPIRAMATE
     Dosage: 1 MG, QD
     Route: 065
  157. TOPIRAMATE [Suspect]
     Active Substance: TOPIRAMATE
     Indication: Product used for unknown indication
     Dosage: 3 MG, QD
     Route: 065
  158. TRAZODONE [Suspect]
     Active Substance: TRAZODONE HYDROCHLORIDE
     Indication: Product used for unknown indication
     Dosage: 2 DF, QD
     Route: 065
  159. DICLOFENAC DIETHYLAMINE [Suspect]
     Active Substance: DICLOFENAC DIETHYLAMINE
     Indication: Product used for unknown indication
     Route: 065

REACTIONS (30)
  - Abdominal discomfort [Fatal]
  - Alopecia [Fatal]
  - Anti-cyclic citrullinated peptide antibody positive [Fatal]
  - Duodenal ulcer perforation [Fatal]
  - Fibromyalgia [Fatal]
  - General physical health deterioration [Fatal]
  - Glossodynia [Fatal]
  - Hand deformity [Fatal]
  - Helicobacter infection [Fatal]
  - Joint range of motion decreased [Fatal]
  - Pemphigus [Fatal]
  - Pericarditis [Fatal]
  - Rash [Fatal]
  - Swelling [Fatal]
  - Synovitis [Fatal]
  - Systemic lupus erythematosus [Fatal]
  - Type 2 diabetes mellitus [Fatal]
  - Vomiting [Fatal]
  - Wheezing [Fatal]
  - Wound [Fatal]
  - Wound infection [Fatal]
  - Arthralgia [Fatal]
  - Blister [Fatal]
  - Breast cancer stage III [Fatal]
  - Depression [Fatal]
  - Diarrhoea [Fatal]
  - Drug intolerance [Fatal]
  - Intentional product use issue [Fatal]
  - Live birth [Fatal]
  - Maternal exposure during pregnancy [Fatal]
